FAERS Safety Report 15155278 (Version 1)
Quarter: 2018Q3

REPORT INFORMATION
  Report Type: Spontaneous
  Country: US (occurrence: US)
  Receive Date: 20180620
  Receipt Date: 20180620
  Transmission Date: 20181010
  Serious: No
  Sender: FDA-Public Use
  Company Number: None

PATIENT
  Age: 48 Year
  Sex: Female
  Weight: 108 kg

DRUGS (1)
  1. GAMUNEX?C [Suspect]
     Active Substance: HUMAN IMMUNOGLOBULIN G
     Indication: SELECTIVE IGG SUBCLASS DEFICIENCY
     Route: 042

REACTIONS (7)
  - Erythema [None]
  - Hypersensitivity [None]
  - Anxiety [None]
  - Pruritus [None]
  - Skin burning sensation [None]
  - Injection site pain [None]
  - Throat tightness [None]

NARRATIVE: CASE EVENT DATE: 20180611
